FAERS Safety Report 4901557-4 (Version None)
Quarter: 2006Q1

REPORT INFORMATION
  Report Type: 
  Country: None (occurrence: None)
  Receive Date: 20060206
  Receipt Date: 20050216
  Transmission Date: 20060701
  Serious: No
  Sender: FDA-Public Use
  Company Number: US-BRISTOL-MYERS SQUIBB COMPANY-12867552

PATIENT
  Sex: Female

DRUGS (1)
  1. TAXOL [Suspect]
     Dates: start: 20041221, end: 20041221

REACTIONS (2)
  - ALOPECIA [None]
  - HYPOAESTHESIA [None]
